FAERS Safety Report 10981726 (Version 2)
Quarter: 2015Q2

REPORT INFORMATION
  Report Type: Spontaneous
  Country: US (occurrence: US)
  Receive Date: 20150402
  Receipt Date: 20150525
  Transmission Date: 20150821
  Serious: No
  Sender: FDA-Public Use
  Company Number: US-JNJFOC-20140420354

PATIENT
  Age: 67 Year
  Sex: Female
  Weight: 60.78 kg

DRUGS (2)
  1. IMODIUM A-D [Suspect]
     Active Substance: LOPERAMIDE HYDROCHLORIDE
     Route: 048
  2. IMODIUM A-D [Suspect]
     Active Substance: LOPERAMIDE HYDROCHLORIDE
     Indication: DIARRHOEA
     Dosage: 7.5 ML= 1 MG ( 22.5 ML= 3 MG)
     Route: 048
     Dates: start: 20140426

REACTIONS (1)
  - Incorrect dose administered [Unknown]
